FAERS Safety Report 8848998 (Version 3)
Quarter: 2012Q4

REPORT INFORMATION
  Report Type: Report from Study
  Country: US (occurrence: US)
  Receive Date: 20121019
  Receipt Date: 20121105
  Transmission Date: 20130627
  Serious: Yes (Hospitalization)
  Sender: FDA-Public Use
  Company Number: US-MERCK-1210USA007486

PATIENT
  Age: 15 Year
  Sex: Female
  Weight: 50 kg

DRUGS (4)
  1. ASENAPINE MALEATE-BIPOLAR DISORDER [Suspect]
     Indication: BIPOLAR I DISORDER
     Dosage: 2.5 mg, bid
     Route: 060
     Dates: start: 20120918, end: 20121014
  2. ATIVAN [Concomitant]
     Indication: ANXIETY
     Dosage: 1 mg, prn
     Route: 048
     Dates: start: 20120816
  3. VITAMIN D (UNSPECIFIED) [Concomitant]
     Indication: ROUTINE HEALTH MAINTENANCE
     Dosage: 1 DF, qd
     Route: 048
  4. VITAMINS (UNSPECIFIED) [Concomitant]
     Indication: ROUTINE HEALTH MAINTENANCE
     Dosage: 1 DF, qd
     Route: 048

REACTIONS (1)
  - Suicidal ideation [Recovered/Resolved]
